FAERS Safety Report 4547894-7 (Version None)
Quarter: 2005Q1

REPORT INFORMATION
  Report Type: 
  Country: None (occurrence: None)
  Receive Date: 20050110
  Receipt Date: 20041229
  Transmission Date: 20050727
  Serious: Yes (Death, Other)
  Sender: FDA-Public Use
  Company Number: US-JNJFOC-20040804902

PATIENT
  Sex: Female
  Weight: 60.33 kg

DRUGS (6)
  1. REMICADE [Suspect]
     Route: 042
  2. REMICADE [Suspect]
     Route: 042
  3. REMICADE [Suspect]
     Route: 042
  4. REMICADE [Suspect]
     Indication: RHEUMATOID ARTHRITIS
     Dosage: TOTAL INFUSIONS RECEIVED IS 17.
     Route: 042
  5. METHOTREXATE [Concomitant]
     Indication: RHEUMATOID ARTHRITIS
  6. CELEBREX [Concomitant]
     Indication: RHEUMATOID ARTHRITIS

REACTIONS (3)
  - BLOOD BLISTER [None]
  - DEATH [None]
  - NON-HODGKIN'S LYMPHOMA [None]
